FAERS Safety Report 17556297 (Version 2)
Quarter: 2020Q2

REPORT INFORMATION
  Report Type: Spontaneous
  Country: US (occurrence: US)
  Receive Date: 20200318
  Receipt Date: 20200405
  Transmission Date: 20200713
  Serious: Yes (Other)
  Sender: FDA-Public Use
  Company Number: NVSC2020US074602

PATIENT
  Age: 65 Year
  Sex: Female

DRUGS (1)
  1. BEOVU [Suspect]
     Active Substance: BROLUCIZUMAB-DBLL
     Indication: NEOVASCULAR AGE-RELATED MACULAR DEGENERATION
     Dosage: 1 DF, Q4W (6 MG/0.05 ML)
     Route: 031
     Dates: start: 20200115, end: 20200212

REACTIONS (8)
  - Anterior chamber inflammation [Recovered/Resolved]
  - Pain [Unknown]
  - Iridocyclitis [Recovered/Resolved]
  - Vitreous floaters [Unknown]
  - Vitritis [Recovered/Resolved]
  - Visual impairment [Recovered/Resolved]
  - Eye inflammation [Unknown]
  - Photophobia [Unknown]

NARRATIVE: CASE EVENT DATE: 20200215
